FAERS Safety Report 17042044 (Version 1)
Quarter: 2019Q4

REPORT INFORMATION
  Report Type: Spontaneous
  Country: US (occurrence: US)
  Receive Date: 20191115
  Receipt Date: 20191115
  Transmission Date: 20200122
  Serious: Yes (Hospitalization)
  Sender: FDA-Public Use
  Company Number: None

PATIENT
  Age: 75 Year
  Sex: Male
  Weight: 79.5 kg

DRUGS (2)
  1. CLOPIDOGREL 75 MG PO DAILY [Concomitant]
     Dates: end: 20191023
  2. APIXABAN [Suspect]
     Active Substance: APIXABAN
     Route: 048
     Dates: start: 20191023, end: 20191023

REACTIONS (2)
  - Haematemesis [None]
  - Melaena [None]

NARRATIVE: CASE EVENT DATE: 20191023
